FAERS Safety Report 4713662-6 (Version None)
Quarter: 2005Q3

REPORT INFORMATION
  Report Type: 
  Country: None (occurrence: None)
  Receive Date: 20050712
  Receipt Date: 20050628
  Transmission Date: 20060218
  Serious: Yes (Death)
  Sender: FDA-Public Use
  Company Number: 11755

PATIENT
  Age: 69 Year
  Sex: Male

DRUGS (9)
  1. CARBOPLATIN [Suspect]
     Indication: LUNG CARCINOMA CELL TYPE UNSPECIFIED STAGE IV
     Dosage: 500 MG
     Dates: start: 20050609, end: 20050614
  2. PEMETREXED [Suspect]
     Indication: LUNG CARCINOMA CELL TYPE UNSPECIFIED STAGE IV
     Dosage: 770 MG
     Dates: start: 20050609, end: 20050614
  3. LACTULOSE [Concomitant]
  4. ESOMEPRAZOLE [Concomitant]
  5. AMLODIPINE BESYLATE [Concomitant]
  6. GENTAMICIN [Concomitant]
  7. PENICILLIN [Concomitant]
  8. DEXAMETHASONE [Concomitant]
  9. METOCLOPRAMIDE [Concomitant]

REACTIONS (2)
  - NEUTROPENIA [None]
  - SEPSIS [None]
